FAERS Safety Report 7936362-8 (Version None)
Quarter: 2011Q4

REPORT INFORMATION
  Report Type: 
  Country: None (occurrence: None)
  Receive Date: 20111123
  Receipt Date: 20111116
  Transmission Date: 20120403
  Serious: Yes (Hospitalization, Disabling, Other)
  Sender: FDA-Public Use
  Company Number: US-SANOFI-AVENTIS-2011SA071741

PATIENT
  Age: 77 Year
  Sex: Male
  Weight: 68 kg

DRUGS (12)
  1. CITALOPRAM HYDROBROMIDE [Concomitant]
     Dates: start: 20110101
  2. PLAVIX [Suspect]
     Route: 048
     Dates: start: 20000101, end: 20111001
  3. PRAVASTATIN [Concomitant]
     Dates: start: 20090101
  4. ARICEPT [Concomitant]
     Dates: start: 20090101
  5. VESICARE [Concomitant]
     Dates: start: 20110101
  6. COUMADIN [Concomitant]
     Dates: start: 20091101, end: 20111001
  7. ASPIRIN [Concomitant]
     Dates: start: 20111001
  8. FOLIC ACID [Concomitant]
  9. LEXAPRO [Concomitant]
     Dates: start: 20090101
  10. PACERONE [Concomitant]
     Dates: start: 20090101
  11. LAMOTRIGINE [Concomitant]
     Indication: BIPOLAR DISORDER
     Dates: start: 20110201
  12. TAMSULOSIN HCL [Concomitant]

REACTIONS (12)
  - ACTIVITIES OF DAILY LIVING IMPAIRED [None]
  - CORONARY ARTERY OCCLUSION [None]
  - DEMENTIA [None]
  - SEPSIS [None]
  - HAEMATURIA [None]
  - TRANSIENT ISCHAEMIC ATTACK [None]
  - CONVULSION [None]
  - AORTIC VALVE DISEASE [None]
  - URINARY TRACT INFECTION [None]
  - DEMENTIA ALZHEIMER'S TYPE [None]
  - HAEMORRHAGE [None]
  - INCONTINENCE [None]
